FAERS Safety Report 4504481-4 (Version None)
Quarter: 2004Q4

REPORT INFORMATION
  Report Type: 
  Country: None (occurrence: None)
  Receive Date: 20041117
  Receipt Date: 20041117
  Transmission Date: 20050328
  Serious: Yes (Hospitalization)
  Sender: FDA-Public Use
  Company Number: None

PATIENT
  Age: 48 Year
  Sex: Female
  Weight: 89.8 kg

DRUGS (1)
  1. AMLODIPINE/BENAZEPRIL [Suspect]
     Dosage: PRIVATE MD, BY MOUTH
     Route: 048
     Dates: start: 20040503, end: 20040802

REACTIONS (2)
  - DIZZINESS [None]
  - HYPOTENSION [None]
